FAERS Safety Report 23571791 (Version 1)
Quarter: 2024Q1

REPORT INFORMATION
  Report Type: Spontaneous
  Country: US (occurrence: None)
  Receive Date: 20240227
  Receipt Date: 20240227
  Transmission Date: 20240410
  Serious: Yes (Other)
  Sender: FDA-Public Use
  Company Number: None

PATIENT
  Age: 21 Year
  Sex: Female
  Weight: 69.7 kg

DRUGS (1)
  1. CABENUVA [Suspect]
     Active Substance: CABOTEGRAVIR\RILPIVIRINE
     Indication: HIV infection
     Dosage: OTHER FREQUENCY : ONCE;?
     Route: 030
     Dates: start: 20240226, end: 20240226

REACTIONS (11)
  - Flushing [None]
  - Immediate post-injection reaction [None]
  - Headache [None]
  - Dizziness [None]
  - Vision blurred [None]
  - Abdominal pain [None]
  - Nausea [None]
  - Blood pressure increased [None]
  - Feeling cold [None]
  - Chills [None]
  - Heart rate increased [None]

NARRATIVE: CASE EVENT DATE: 20240226
